FAERS Safety Report 8964001 (Version 2)
Quarter: 2013Q1

REPORT INFORMATION
  Report Type: Spontaneous
  Country: PT (occurrence: PT)
  Receive Date: 20121213
  Receipt Date: 20130215
  Transmission Date: 20140127
  Serious: Yes (Hospitalization, Other)
  Sender: FDA-Public Use
  Company Number: PT-B.I. PHARMACEUTICALS,INC./RIDGEFIELD-2012-BI-02886PO

PATIENT
  Age: 66 Year
  Sex: Male

DRUGS (3)
  1. PRADAXA [Suspect]
     Indication: KNEE ARTHROPLASTY
     Dosage: 220 MG
     Route: 048
     Dates: start: 20121108, end: 20121114
  2. IRBESARTAN [Concomitant]
     Dosage: 150 MG
  3. SIMVASTATIN [Concomitant]
     Dosage: 40 MG

REACTIONS (3)
  - Jaundice [Unknown]
  - Hepatic function abnormal [Unknown]
  - Liver function test abnormal [Recovered/Resolved]
